FAERS Safety Report 6149686-4 (Version None)
Quarter: 2009Q2

REPORT INFORMATION
  Report Type: 
  Country: None (occurrence: None)
  Receive Date: 20090407
  Receipt Date: 20090407
  Transmission Date: 20091009
  Serious: Yes (Other)
  Sender: FDA-Public Use
  Company Number: None

PATIENT
  Age: 28 Year
  Sex: Male
  Weight: 72.5755 kg

DRUGS (1)
  1. KENALOG [Suspect]
     Indication: SKIN IRRITATION
     Dosage: ONE SHOT

REACTIONS (3)
  - INJECTION SITE DISCOLOURATION [None]
  - INJECTION SITE DISCOMFORT [None]
  - INJECTION SITE REACTION [None]
